FAERS Safety Report 16480552 (Version 2)
Quarter: 2019Q3

REPORT INFORMATION
  Report Type: Report from Study
  Country: US (occurrence: US)
  Receive Date: 20190626
  Receipt Date: 20190703
  Transmission Date: 20191004
  Serious: No
  Sender: FDA-Public Use
  Company Number: US-OTSUKA-2019_002341

PATIENT
  Age: 43 Year
  Sex: Female

DRUGS (6)
  1. TOLVAPTAN [Suspect]
     Active Substance: TOLVAPTAN
     Dosage: 15MG, QD (8 HOURS LATER)
     Route: 048
     Dates: end: 20190602
  2. TOLVAPTAN [Suspect]
     Active Substance: TOLVAPTAN
     Indication: CONGENITAL CYSTIC KIDNEY DISEASE
     Dosage: 60 MG, QD (UPON WAKING)
     Route: 048
     Dates: start: 20181023
  3. ENALAPRIL MALEATE. [Concomitant]
     Active Substance: ENALAPRIL MALEATE
     Indication: PRODUCT USED FOR UNKNOWN INDICATION
     Dosage: 5 MG, QD
     Route: 048
     Dates: start: 20180913
  4. TOLVAPTAN [Suspect]
     Active Substance: TOLVAPTAN
     Dosage: 45 MG, QD (UPON WAKING)
     Route: 048
     Dates: end: 20190602
  5. TOLVAPTAN [Suspect]
     Active Substance: TOLVAPTAN
     Dosage: 30 MG, QD (8 HOURS LATER)
     Route: 048
     Dates: start: 20181023
  6. VITAMIN D3 [Concomitant]
     Active Substance: CHOLECALCIFEROL
     Indication: PRODUCT USED FOR UNKNOWN INDICATION
     Dosage: 1000 UNIT, ONE CAPSULE DAILY
     Route: 048

REACTIONS (10)
  - Lacrimation increased [Unknown]
  - Aspartate aminotransferase increased [Not Recovered/Not Resolved]
  - Red cell distribution width increased [Unknown]
  - Eye pruritus [Unknown]
  - Anion gap decreased [Unknown]
  - Chronic kidney disease [Unknown]
  - Alanine aminotransferase increased [Not Recovered/Not Resolved]
  - Drug hypersensitivity [Unknown]
  - Haemoglobin decreased [Unknown]
  - Rash pruritic [Recovered/Resolved]

NARRATIVE: CASE EVENT DATE: 20190531
